FAERS Safety Report 8163344-6 (Version None)
Quarter: 2012Q1

REPORT INFORMATION
  Report Type: 
  Country: None (occurrence: None)
  Receive Date: 20120224
  Receipt Date: 20120217
  Transmission Date: 20120608
  Serious: No
  Sender: FDA-Public Use
  Company Number: US-US-EMD SERONO, INC.-7112639

PATIENT
  Sex: Female
  Weight: 110 kg

DRUGS (7)
  1. METFORMIN HCL [Concomitant]
     Indication: DIABETES MELLITUS
  2. NUMEROUS BLOOD PRESSURE MEDICATIONS [Concomitant]
     Indication: HYPERTENSION
  3. DEXAMETHASONE [Concomitant]
     Route: 048
  4. SOLU-MEDROL [Concomitant]
     Indication: MULTIPLE SCLEROSIS RELAPSE
  5. ACTOS [Concomitant]
     Indication: DIABETES MELLITUS
  6. OXYBUTYNIN [Concomitant]
     Indication: MULTIPLE SCLEROSIS
     Route: 048
  7. REBIF [Suspect]
     Indication: MULTIPLE SCLEROSIS
     Route: 058
     Dates: start: 20100629

REACTIONS (5)
  - BALANCE DISORDER [None]
  - COUGH [None]
  - DYSKINESIA [None]
  - SINUS CONGESTION [None]
  - PYREXIA [None]
